FAERS Safety Report 26157798 (Version 1)
Quarter: 2025Q4

REPORT INFORMATION
  Report Type: Spontaneous
  Country: US (occurrence: None)
  Receive Date: 20251214
  Receipt Date: 20251214
  Transmission Date: 20260118
  Serious: Yes (Hospitalization)
  Sender: FDA-CTU
  Company Number: None

PATIENT
  Sex: Male

DRUGS (7)
  1. VYNDAMAX [Suspect]
     Active Substance: TAFAMIDIS
     Indication: Amyloidosis
     Dosage: FREQUENCY : DAILY;
     Route: 048
     Dates: start: 20241231
  2. AMVUTTRA  SOL 25/0.SML [Concomitant]
  3. CRESTOR TAB 5MG [Concomitant]
  4. LEXAPRO TAB 5MG [Concomitant]
  5. LISINOPRIL [Concomitant]
     Active Substance: LISINOPRIL
  6. METOPROL TAR TAB 25MG [Concomitant]
  7. OMEPRAZOLE TAB 20MG [Concomitant]

REACTIONS (1)
  - Surgery [None]
